FAERS Safety Report 25137720 (Version 3)
Quarter: 2025Q3

REPORT INFORMATION
  Report Type: Spontaneous
  Country: EU (occurrence: EU)
  Receive Date: 20250329
  Receipt Date: 20250711
  Transmission Date: 20251020
  Serious: Yes (Hospitalization, Other)
  Sender: MACLEODS
  Company Number: EU-MACLEODS PHARMA-MAC2025052318

PATIENT

DRUGS (8)
  1. ROSUVASTATIN [Suspect]
     Active Substance: ROSUVASTATIN
     Indication: Prostate cancer metastatic
     Dosage: 40 MILLIGRAM, DAILY
     Route: 065
  2. PREDNISOLONE [Suspect]
     Active Substance: PREDNISOLONE
     Indication: Hormone-refractory prostate cancer
     Dosage: 5 MILLIGRAM, BID
     Route: 065
  3. ABIRATERONE [Suspect]
     Active Substance: ABIRATERONE
     Indication: Hormone-refractory prostate cancer
     Dosage: 1000 MILLIGRAM, DAILY
     Route: 048
  4. CHLORTHALIDONE [Concomitant]
     Active Substance: CHLORTHALIDONE
     Indication: Ischaemic heart disease prophylaxis
     Route: 065
  5. METOPROLOL [Concomitant]
     Active Substance: METOPROLOL
     Indication: Ischaemic heart disease prophylaxis
     Route: 065
  6. RIVAROXABAN [Concomitant]
     Active Substance: RIVAROXABAN
     Indication: Ischaemic heart disease prophylaxis
     Route: 065
  7. TRIPTORELIN [Concomitant]
     Active Substance: TRIPTORELIN
     Route: 065
  8. TRIPTORELIN [Concomitant]
     Active Substance: TRIPTORELIN

REACTIONS (10)
  - Acute kidney injury [Recovering/Resolving]
  - Rhabdomyolysis [Recovering/Resolving]
  - Hypocalcaemia [Recovering/Resolving]
  - Hydronephrosis [Recovering/Resolving]
  - Blood urea increased [Recovering/Resolving]
  - Metabolic disorder [Recovering/Resolving]
  - Toxicity to various agents [Unknown]
  - Drug abuse [Unknown]
  - Labelled drug-drug interaction issue [Recovered/Resolved]
  - Medication error [Unknown]
